FAERS Safety Report 15773907 (Version 1)
Quarter: 2018Q4

REPORT INFORMATION
  Report Type: Spontaneous
  Country: US (occurrence: US)
  Receive Date: 20181229
  Receipt Date: 20181229
  Transmission Date: 20190205
  Serious: Yes (Death, Hospitalization, Other)
  Sender: FDA-Public Use
  Company Number: US-AUROBINDO-AUR-APL-2018-061519

PATIENT
  Age: 50 Year
  Sex: Female

DRUGS (5)
  1. TOPIRAMATE. [Suspect]
     Active Substance: TOPIRAMATE
     Indication: PRODUCT USED FOR UNKNOWN INDICATION
     Route: 048
  2. OMEPRAZOLE. [Suspect]
     Active Substance: OMEPRAZOLE
     Indication: PRODUCT USED FOR UNKNOWN INDICATION
     Route: 048
  3. NIFEDIPINE. [Suspect]
     Active Substance: NIFEDIPINE
     Indication: PRODUCT USED FOR UNKNOWN INDICATION
     Route: 048
  4. CARVEDILOL. [Suspect]
     Active Substance: CARVEDILOL
     Indication: PRODUCT USED FOR UNKNOWN INDICATION
     Route: 048
  5. TRAMADOL. [Suspect]
     Active Substance: TRAMADOL
     Indication: PRODUCT USED FOR UNKNOWN INDICATION
     Route: 048

REACTIONS (1)
  - Completed suicide [Fatal]
